FAERS Safety Report 24207651 (Version 1)
Quarter: 2024Q3

REPORT INFORMATION
  Report Type: Spontaneous
  Country: GB (occurrence: GB)
  Receive Date: 20240814
  Receipt Date: 20240814
  Transmission Date: 20241017
  Serious: Yes (Death)
  Sender: CELLTRION
  Company Number: GB-CELLTRION INC.-2024GB019157

PATIENT

DRUGS (1)
  1. INFLIXIMAB [Suspect]
     Active Substance: INFLIXIMAB
     Indication: Rheumatoid arthritis
     Dosage: 120 MG PREFILLED PEN PK2
     Route: 058
     Dates: start: 202312

REACTIONS (1)
  - Death [Fatal]
